FAERS Safety Report 20068563 (Version 4)
Quarter: 2022Q2

REPORT INFORMATION
  Report Type: Spontaneous
  Country: US (occurrence: US)
  Receive Date: 20211115
  Receipt Date: 20220510
  Transmission Date: 20220721
  Serious: No
  Sender: FDA-Public Use
  Company Number: US-PFIZER INC-202101540617

PATIENT
  Age: 65 Year
  Sex: Female
  Weight: 63.5 kg

DRUGS (17)
  1. DESVENLAFAXINE SUCCINATE [Suspect]
     Active Substance: DESVENLAFAXINE SUCCINATE
     Indication: Depression
     Dosage: 100 MG, 1X/DAY
     Dates: start: 2021, end: 202108
  2. DESVENLAFAXINE SUCCINATE [Suspect]
     Active Substance: DESVENLAFAXINE SUCCINATE
     Dosage: 50 MG, 1X/DAY (50MG ONE TIME A DAY BY MOUTH)
     Route: 048
  3. AMBIEN [Concomitant]
     Active Substance: ZOLPIDEM TARTRATE
     Dosage: 10 MG, AS NEEDED (10 MG TABLET, TAKE 1 TABLET ORALLY ONCE A DAY AT NIGHT AS NEEDED)
     Route: 048
  4. ASPIRIN [Concomitant]
     Active Substance: ASPIRIN
     Dosage: 81 MG, 1X/DAY
     Route: 048
  5. ELIQUIS [Concomitant]
     Active Substance: APIXABAN
     Dosage: 5 MG, 2X/DAY:TAKE 1 TABLET ORALLY 2 TIMES A DAY
     Route: 048
     Dates: start: 2018
  6. IBUPROFEN [Concomitant]
     Active Substance: IBUPROFEN
     Dosage: 600 MG (TAKE 1 TABLET ORALLY EVERY 8 HOURS)
     Route: 048
  7. MELATONIN [Concomitant]
     Active Substance: MELATONIN
     Dosage: 10 MG, 1X/DAY (TAKE 1 CAPSULE ORALLY ONCE A DAY AT NIGHT)
  8. MIDODRINE [Concomitant]
     Active Substance: MIDODRINE
     Indication: Blood pressure measurement
     Dosage: 5 MG, 3X/DAY:TAKE 1 TABLET 3 TIMES A DAY
     Dates: start: 2019
  9. NEXIUM [ESOMEPRAZOLE MAGNESIUM TRIHYDRATE] [Concomitant]
     Dosage: 40 MG, 2X/DAY (1 CAPSULE BY MOUTH TWICE DAILY)
     Route: 048
  10. POTASSIUM CHLORIDE [Concomitant]
     Active Substance: POTASSIUM CHLORIDE
     Dosage: 20 MEQ, 1X/DAY (TAKE 1 TABLET ORALLY ONCE A DAY)
  11. PROAIR HFA [Concomitant]
     Active Substance: ALBUTEROL SULFATE
     Dosage: 2 DF, AS NEEDED  (2 PUFFS BY MOUTH 2 TIMES DAILY AS NEEDED)
     Route: 048
  12. SYMBICORT [Concomitant]
     Active Substance: BUDESONIDE\FORMOTEROL FUMARATE DIHYDRATE
     Dosage: 1 DF, 2X/DAY (1 PUFFS BY MOUTH TWICE A DAY)
  13. TORSEMIDE [Concomitant]
     Active Substance: TORSEMIDE
     Dosage: 20 MG (TAKE 1 TABLET ORALLY 3 TIMES A WEEK)
     Route: 048
  14. VITAMIN B12 [Concomitant]
     Active Substance: CYANOCOBALAMIN
     Dosage: 5000 UG, 1X/DAY (5000 MCG LIQUID ONCE DAILY)
  15. ALPRAZOLAM [Concomitant]
     Active Substance: ALPRAZOLAM
     Dosage: 3 MG, DAILY (TAKE 3 TABLET ORALLY ONCE A DAY 1/2 MORNING 1/2 AFTERNOON + 2(1MG) AT NIGHT)
     Route: 048
  16. XYZAL [Concomitant]
     Active Substance: LEVOCETIRIZINE DIHYDROCHLORIDE
     Dosage: 5 MG, AS NEEDED (TAKE 1 TABLET ORALLY ONCE A DAY AS NEEDED)
     Route: 048
  17. ZITHROMAX [Concomitant]
     Active Substance: AZITHROMYCIN DIHYDRATE
     Dosage: UNK

REACTIONS (8)
  - Drug ineffective [Unknown]
  - Crying [Unknown]
  - Thinking abnormal [Unknown]
  - Abnormal behaviour [Unknown]
  - Nervousness [Unknown]
  - Therapeutic product effect incomplete [Unknown]
  - Sleep disorder [Unknown]
  - Adverse reaction [Unknown]

NARRATIVE: CASE EVENT DATE: 20210101
